FAERS Safety Report 18630310 (Version 2)
Quarter: 2020Q4

REPORT INFORMATION
  Report Type: Spontaneous
  Country: AT (occurrence: AT)
  Receive Date: 20201217
  Receipt Date: 20201221
  Transmission Date: 20210114
  Serious: Yes (Other)
  Sender: FDA-Public Use
  Company Number: AT-GE HEALTHCARE LIFE SCIENCES-2020CSU006399

PATIENT

DRUGS (5)
  1. CLARISCAN [Suspect]
     Active Substance: GADOTERATE MEGLUMINE
     Indication: SPLENIC LESION
  2. CLARISCAN [Suspect]
     Active Substance: GADOTERATE MEGLUMINE
     Indication: COMPUTERISED TOMOGRAM ABNORMAL
  3. OLEOVIT D3 [Concomitant]
     Active Substance: CHOLECALCIFEROL
     Dosage: OMCE A WEEK- 40 (NOT SPECIFIED)
  4. CANDEBLO [Concomitant]
     Dosage: 8 MG, 1/2 TABLET
     Dates: start: 2020
  5. CLARISCAN [Suspect]
     Active Substance: GADOTERATE MEGLUMINE
     Indication: MAGNETIC RESONANCE IMAGING
     Dosage: 18 ML, SINGLE
     Route: 042
     Dates: start: 20201210, end: 20201210

REACTIONS (2)
  - Cough [Recovered/Resolved]
  - Respiratory tract irritation [Recovered/Resolved]

NARRATIVE: CASE EVENT DATE: 20201210
